FAERS Safety Report 5462270-0 (Version None)
Quarter: 2007Q3

REPORT INFORMATION
  Report Type: 
  Country: None (occurrence: None)
  Receive Date: 20070920
  Receipt Date: 20070612
  Transmission Date: 20080115
  Serious: No
  Sender: FDA-Public Use
  Company Number: A0655000A

PATIENT
  Sex: Male

DRUGS (1)
  1. ABREVA [Suspect]
     Dates: start: 20070524, end: 20070610

REACTIONS (1)
  - DRUG INEFFECTIVE [None]
